FAERS Safety Report 9204629 (Version 2)
Quarter: 2021Q4

REPORT INFORMATION
  Report Type: Spontaneous
  Country: GB (occurrence: GB)
  Receive Date: 20130402
  Receipt Date: 20211002
  Transmission Date: 20220303
  Serious: Yes (Hospitalization)
  Sender: FDA-Public Use
  Company Number: None

PATIENT
  Age: 72 Year
  Sex: Male

DRUGS (5)
  1. NAPROXEN [Interacting]
     Active Substance: NAPROXEN
     Indication: Rheumatoid arthritis
     Dosage: 1000 MILLIGRAM DAILY; TOTAL DOSE : 406000 MG
     Route: 048
     Dates: start: 20111114, end: 20121223
  2. PERINDOPRIL [Interacting]
     Active Substance: PERINDOPRIL
     Indication: Product used for unknown indication
     Route: 065
  3. SULFASALAZINE [Interacting]
     Active Substance: SULFASALAZINE
     Indication: Rheumatoid arthritis
     Dosage: 500 MILLIGRAM DAILY; 500MG ONCE DAILY FOR 7 DAYS AND THEN TWICE DAILY FOR 3 DAYS. TOTAL DOSE : 5500
     Route: 048
     Dates: start: 20121203, end: 20121213
  4. SULFASALAZINE [Interacting]
     Active Substance: SULFASALAZINE
     Dosage: 1000 MILLIGRAM DAILY; 500MG ONCE DAILY FOR 7 DAYS AND THEN TWICE DAILY FOR 3 DAYS; TOTAL DOSE : 1100
     Route: 048
     Dates: start: 20121203, end: 20121213
  5. OMEPRAZOLE [Concomitant]
     Active Substance: OMEPRAZOLE
     Indication: Product used for unknown indication
     Route: 065

REACTIONS (5)
  - Acute kidney injury [Recovered/Resolved]
  - Diarrhoea [Unknown]
  - Malaise [Unknown]
  - Blood creatinine increased [Recovered/Resolved]
  - Drug interaction [Unknown]

NARRATIVE: CASE EVENT DATE: 20121223
